FAERS Safety Report 9096632 (Version 1)
Quarter: 2013Q1

REPORT INFORMATION
  Report Type: Spontaneous
  Country: JP (occurrence: None)
  Receive Date: 20130125
  Receipt Date: 20130125
  Transmission Date: 20140127
  Serious: Yes (Other)
  Sender: FDA-Public Use
  Company Number: ENT 2013-0011

PATIENT
  Age: 72 Year
  Sex: Male

DRUGS (1)
  1. COMTAN [Suspect]
     Route: 048

REACTIONS (2)
  - Pneumonia aspiration [None]
  - Sputum discoloured [None]
